FAERS Safety Report 5557784-9 (Version None)
Quarter: 2007Q4

REPORT INFORMATION
  Report Type: 
  Country: None (occurrence: None)
  Receive Date: 20071214
  Receipt Date: 20070716
  Transmission Date: 20080405
  Serious: Yes (Hospitalization, Disabling)
  Sender: FDA-Public Use
  Company Number: US-MERCK-0707USA02471

PATIENT
  Age: 11 Year
  Sex: Male

DRUGS (1)
  1. JANUMET [Suspect]
     Indication: DIABETES MELLITUS
     Route: 048
     Dates: start: 20070626, end: 20070711

REACTIONS (10)
  - DIARRHOEA [None]
  - FATIGUE [None]
  - HEART RATE INCREASED [None]
  - HEART RATE IRREGULAR [None]
  - HYPERHIDROSIS [None]
  - OVERDOSE [None]
  - PALLOR [None]
  - SOMNOLENCE [None]
  - VOMITING [None]
  - WOLFF-PARKINSON-WHITE SYNDROME [None]
